FAERS Safety Report 21145983 (Version 2)
Quarter: 2022Q3

REPORT INFORMATION
  Report Type: Report from Study
  Country: US (occurrence: US)
  Receive Date: 20220729
  Receipt Date: 20220927
  Transmission Date: 20221027
  Serious: Yes (Hospitalization, Other)
  Sender: FDA-Public Use
  Company Number: US-ABBVIE-22K-163-4485045-00

PATIENT
  Sex: Female

DRUGS (1)
  1. IMBRUVICA [Suspect]
     Active Substance: IBRUTINIB
     Indication: Waldenstrom^s macroglobulinaemia
     Route: 048
     Dates: start: 20210917, end: 20220811

REACTIONS (3)
  - Cerebral haemorrhage [Recovered/Resolved]
  - Chest pain [Recovering/Resolving]
  - Throat tightness [Recovering/Resolving]

NARRATIVE: CASE EVENT DATE: 20220101
